FAERS Safety Report 20766977 (Version 1)
Quarter: 2022Q2

REPORT INFORMATION
  Report Type: Spontaneous
  Country: NL (occurrence: NL)
  Receive Date: 20220429
  Receipt Date: 20220429
  Transmission Date: 20220721
  Serious: Yes (Hospitalization)
  Sender: FDA-Public Use
  Company Number: None

PATIENT
  Age: 81 Year
  Sex: Male
  Weight: 76.8 kg

DRUGS (7)
  1. PANTOPRAZOLE [Suspect]
     Active Substance: PANTOPRAZOLE
     Indication: Prophylaxis
     Dosage: 40 MILLIGRAM DAILY; 1 X PER DAY 1 PIECE , PANTOPRAZOL TABLET MSR 40MG / BRAND NAME NOT SPECIFIED , S
     Dates: start: 20150714, end: 20220331
  2. PREDNISOLONE ACETATE [Concomitant]
     Active Substance: PREDNISOLONE ACETATE
     Dosage: 10 MG/ML (MILLIGRAM PER MILLILITER) , PREDNISOLON OOGDR, SUSP 10MG/ML ACETAAT / BRAND NAME NOT SPEC
  3. FUROSEMIDE [Concomitant]
     Active Substance: FUROSEMIDE
     Dosage: 40 MG (MILLIGRAM) , THERAPY START DATE AND END DATE : ASKU , STRENGTH : 40 MG , BRAND NAME NOT SPECI
  4. APIXABAN [Concomitant]
     Active Substance: APIXABAN
     Dosage: 5 MG (MILLIGRAM) , BRAND NAME NOT SPECIFIED, THERAPY START DATE AND END DATE : ASKU , STRENGTH : 5
  5. COLCHICINE [Concomitant]
     Active Substance: COLCHICINE
     Dosage: 0,5 MG (MILLIGRAM) , THERAPY START DATE AND END DATE : ASKU , BRAND NAME NOT SPECIFIED , STRENGTH :
  6. SODIUM CHLORIDE [Concomitant]
     Active Substance: SODIUM CHLORIDE
     Dosage: 50 MG/ML (MILLIGRAM PER MILLILITER) , THERAPY START DATE AND END DATE : ASKU , NATRIUMCHLORIDE OOGD
  7. ASCORBIC ACID [Concomitant]
     Active Substance: ASCORBIC ACID
     Dosage: 50 MG (MILLIGRAM) , THERAPY START DATE AND END DATE : ASKU , STRENGTH : 50 MG

REACTIONS (2)
  - Hypocalcaemia [Recovered/Resolved]
  - Paraesthesia [Recovered/Resolved]

NARRATIVE: CASE EVENT DATE: 20220329
